FAERS Safety Report 5775172-7 (Version None)
Quarter: 2008Q2

REPORT INFORMATION
  Report Type: 
  Country: None (occurrence: None)
  Receive Date: 20080616
  Receipt Date: 20080616
  Transmission Date: 20081010
  Serious: Yes (Hospitalization)
  Sender: FDA-Public Use
  Company Number: None

PATIENT
  Age: 27 Year
  Sex: Male
  Weight: 68.0396 kg

DRUGS (4)
  1. SEROQUEL [Suspect]
     Indication: SCHIZOPHRENIA, PARANOID TYPE
     Dosage: 850MG BEDTIME PO
     Route: 048
     Dates: start: 20060201, end: 20060501
  2. TRAZODONE HCL [Concomitant]
  3. PORPANANOL [Concomitant]
  4. STRATTERA [Concomitant]

REACTIONS (11)
  - CARDIAC DISORDER [None]
  - DYSPNOEA [None]
  - FEELING COLD [None]
  - HOT FLUSH [None]
  - NAUSEA [None]
  - PAIN [None]
  - PURGING [None]
  - RESPIRATORY DISORDER [None]
  - SLEEP DISORDER [None]
  - VOMITING [None]
  - WITHDRAWAL SYNDROME [None]
